FAERS Safety Report 19534434 (Version 7)
Quarter: 2023Q1

REPORT INFORMATION
  Report Type: Report from Study
  Country: IN (occurrence: IN)
  Receive Date: 20210713
  Receipt Date: 20230222
  Transmission Date: 20230418
  Serious: Yes (Hospitalization, Other)
  Sender: FDA-Public Use
  Company Number: IN-NOVARTISPH-NVSC2021IN153554

PATIENT
  Sex: Male

DRUGS (13)
  1. SECUKINUMAB [Suspect]
     Active Substance: SECUKINUMAB
     Indication: Psoriasis
     Dosage: 300 MG, (LOADING DOSE)
     Route: 058
     Dates: start: 20200930
  2. SECUKINUMAB [Suspect]
     Active Substance: SECUKINUMAB
     Indication: Psoriatic arthropathy
     Dosage: 150 MG, Q2MO
     Route: 058
  3. SECUKINUMAB [Suspect]
     Active Substance: SECUKINUMAB
     Indication: Vitamin D deficiency
     Dosage: 150 MG, QMO
     Route: 058
     Dates: start: 20210508
  4. SECUKINUMAB [Suspect]
     Active Substance: SECUKINUMAB
     Dosage: UNK
     Route: 065
     Dates: start: 20220820
  5. SECUKINUMAB [Suspect]
     Active Substance: SECUKINUMAB
     Dosage: UNK UNK, QMO
     Route: 058
  6. SECUKINUMAB [Suspect]
     Active Substance: SECUKINUMAB
     Dosage: 150 MG, QMO
     Route: 058
  7. SECUKINUMAB [Suspect]
     Active Substance: SECUKINUMAB
     Dosage: UNK
     Route: 065
     Dates: start: 20221212
  8. SECUKINUMAB [Suspect]
     Active Substance: SECUKINUMAB
     Dosage: 150 MG, QMO
     Route: 058
     Dates: start: 20230119
  9. METHOTREXATE SODIUM [Concomitant]
     Active Substance: METHOTREXATE SODIUM
     Indication: Product used for unknown indication
     Dosage: 1 DOSAGE FORM, QD (0-1-0)  AFTER LUNCH- SUNDAY ? TILL NEXT MEET
     Route: 048
  10. FOLVITE [Concomitant]
     Active Substance: FOLIC ACID
     Indication: Product used for unknown indication
     Dosage: 1 DOSAGE FORM, QD (0-1-0)  AFTER LUNCH- TUESDAY AND THURSDAY ? TILL NEXT MEET
     Route: 048
  11. PROPYSALIC [Concomitant]
     Indication: Product used for unknown indication
     Dosage: 1 DOSAGE FORM (UNITS), QD  (0-1-0) AFTER BATH- SOS- TILL NEXT MEET
     Route: 065
  12. PREVNAR 13 [Concomitant]
     Active Substance: PNEUMOCOCCAL 13-VALENT CONJUGATE VACCINE
     Indication: Product used for unknown indication
     Dosage: UNK, ONCE/SINGLE
     Route: 030
  13. INFLUVAC [Concomitant]
     Active Substance: INFLUENZA VIRUS VACCINE TRIVALENT TYPE A+B
     Indication: Product used for unknown indication
     Dosage: UNK, Q12MO
     Route: 065
     Dates: start: 202209

REACTIONS (12)
  - SARS-CoV-2 test positive [Recovered/Resolved]
  - Pneumonia [Unknown]
  - Thrombosis [Unknown]
  - Musculoskeletal stiffness [Unknown]
  - Aspartate aminotransferase abnormal [Unknown]
  - Arthralgia [Unknown]
  - Vitamin D deficiency [Unknown]
  - Alanine aminotransferase increased [Unknown]
  - Blood pressure increased [Unknown]
  - Psoriasis [Unknown]
  - Product availability issue [Unknown]
  - Product use issue [Unknown]
